FAERS Safety Report 21962912 (Version 2)
Quarter: 2023Q1

REPORT INFORMATION
  Report Type: Report from Study
  Country: CO (occurrence: CO)
  Receive Date: 20230207
  Receipt Date: 20230322
  Transmission Date: 20230417
  Serious: Yes (Life-Threatening, Hospitalization)
  Sender: FDA-Public Use
  Company Number: CO-ABBVIE-4297742

PATIENT
  Age: 44 Year
  Sex: Female
  Weight: 39 kg

DRUGS (1)
  1. ZEMPLAR [Suspect]
     Active Substance: PARICALCITOL
     Indication: Chronic kidney disease
     Dosage: FORM STRENGTH: 5 MICROGRAM
     Route: 042
     Dates: start: 20190314, end: 20220728

REACTIONS (4)
  - Haemorrhage [Recovering/Resolving]
  - Influenza like illness [Not Recovered/Not Resolved]
  - Fistula [Recovering/Resolving]
  - Medical device site pain [Not Recovered/Not Resolved]

NARRATIVE: CASE EVENT DATE: 20230101
